FAERS Safety Report 5301640-8 (Version None)
Quarter: 2007Q2

REPORT INFORMATION
  Report Type: 
  Country: None (occurrence: None)
  Receive Date: 20070419
  Receipt Date: 20070410
  Transmission Date: 20071010
  Serious: Yes (Disabling)
  Sender: FDA-Public Use
  Company Number: 2007UW07297

PATIENT
  Age: 65 Year
  Sex: Female

DRUGS (5)
  1. ATACAND [Suspect]
     Indication: HYPERTENSION
     Route: 048
     Dates: start: 20070201, end: 20070201
  2. ATACAND [Suspect]
     Route: 048
     Dates: start: 20070201
  3. ATACAND [Suspect]
     Route: 048
     Dates: end: 20070401
  4. HYDROCHLOROTHIAZIDE [Concomitant]
  5. INSULIN [Concomitant]

REACTIONS (2)
  - PHOTOPHOBIA [None]
  - VISUAL DISTURBANCE [None]
